FAERS Safety Report 4688772-2 (Version None)
Quarter: 2005Q2

REPORT INFORMATION
  Report Type: 
  Country: None (occurrence: None)
  Receive Date: 20050609
  Receipt Date: 20050609
  Transmission Date: 20051028
  Serious: Yes (Hospitalization, Disabling, Other)
  Sender: FDA-Public Use
  Company Number: None

PATIENT
  Sex: Female
  Weight: 74.8435 kg

DRUGS (4)
  1. CIPRO [Suspect]
     Indication: POSTOPERATIVE INFECTION
     Dates: start: 20030501, end: 20030515
  2. CIPRO [Suspect]
     Indication: URINARY TRACT INFECTION
     Dates: start: 20030501, end: 20030515
  3. CIPRO [Suspect]
     Indication: VAGINAL INFECTION
     Dates: start: 20030501, end: 20030515
  4. LEVAQUIN [Suspect]
     Indication: STAPHYLOCOCCAL INFECTION
     Dates: start: 20030604, end: 20030611

REACTIONS (1)
  - NEUROPATHY [None]
